FAERS Safety Report 8396457-4 (Version None)
Quarter: 2012Q2

REPORT INFORMATION
  Report Type: 
  Country: None (occurrence: None)
  Receive Date: 20120530
  Receipt Date: 20120529
  Transmission Date: 20120825
  Serious: Yes (Death, Hospitalization)
  Sender: FDA-Public Use
  Company Number: US-ROCHE-1067799

PATIENT
  Age: 70 Year
  Sex: Male
  Weight: 118.7 kg

DRUGS (4)
  1. DOCETAXEL [Suspect]
     Indication: PROSTATE CANCER
     Dosage: OVER 60 MINS ON DAY 1, TOTAL DOSE 173 MG, LAST DOSE 09/APR/2012
     Route: 042
     Dates: start: 20110207
  2. PREDNISONE TAB [Suspect]
     Indication: PROSTATE CANCER
     Dosage: TOTAL DOSE, 230 MG , LAST DOSE 02/MAY/2012
     Route: 048
     Dates: start: 20110207
  3. AVASTIN [Suspect]
     Indication: PROSTATE CANCER
     Dosage: OVER 30 TO 90 MINS DAY 1, TOTAL DOSE 1590 MG, LAST DOSE 09/APR/2012
     Route: 042
     Dates: start: 20110207
  4. LENALIDOMIDE [Suspect]
     Indication: PROSTATE CANCER
     Dosage: ON DAY 1-14, LAST DOSE 22/APR/2012, TOTAL DOSE 350 MG
     Route: 048
     Dates: start: 20110207

REACTIONS (2)
  - DEATH [None]
  - SCROTAL INFECTION [None]
